FAERS Safety Report 14983116 (Version 1)
Quarter: 2018Q2

REPORT INFORMATION
  Report Type: Report from Study
  Country: FR (occurrence: FR)
  Receive Date: 20180607
  Receipt Date: 20180607
  Transmission Date: 20180711
  Serious: Yes (Hospitalization, Other)
  Sender: FDA-Public Use
  Company Number: FR-ACCORD-067744

PATIENT
  Sex: Male

DRUGS (5)
  1. DOXORUBICIN [Interacting]
     Active Substance: DOXORUBICIN
     Indication: ACUTE LYMPHOCYTIC LEUKAEMIA
     Dosage: 17.2 MG, 1X/DAY:QD
     Route: 042
     Dates: start: 20171006, end: 20171020
  2. METHOTREXATE. [Suspect]
     Active Substance: METHOTREXATE
     Indication: ACUTE LYMPHOCYTIC LEUKAEMIA
     Dosage: 12 MG, 1X/DAY:QD
     Route: 037
     Dates: start: 20171009, end: 20171009
  3. PEGASPARGASE [Interacting]
     Active Substance: PEGASPARGASE
     Indication: ACUTE LYMPHOCYTIC LEUKAEMIA
     Dosage: 1725 MG, 1X/DAY:QD
     Route: 042
     Dates: start: 20171009, end: 20171009
  4. VINCRISTINE [Interacting]
     Active Substance: VINCRISTINE
     Indication: ACUTE LYMPHOCYTIC LEUKAEMIA
     Dosage: 1 MG, 1X/DAY:QD
     Route: 042
     Dates: start: 20171006, end: 20171020
  5. DEXAMETHASONE. [Interacting]
     Active Substance: DEXAMETHASONE
     Indication: ACUTE LYMPHOCYTIC LEUKAEMIA
     Dosage: 6.9 MG, 1X/DAY:QD
     Route: 048
     Dates: start: 20171006, end: 20171019

REACTIONS (2)
  - Intracardiac thrombus [Not Recovered/Not Resolved]
  - Drug interaction [Unknown]

NARRATIVE: CASE EVENT DATE: 20171027
